FAERS Safety Report 24308482 (Version 1)
Quarter: 2024Q3

REPORT INFORMATION
  Report Type: Spontaneous
  Country: GB (occurrence: GB)
  Receive Date: 20240911
  Receipt Date: 20240911
  Transmission Date: 20241016
  Serious: Yes (Other)
  Sender: MYLAN
  Company Number: None

PATIENT
  Age: 71 Year
  Weight: 77 kg

DRUGS (1)
  1. COLCHICINE [Suspect]
     Active Substance: COLCHICINE
     Indication: Gout
     Dosage: 500 MILLIGRAM
     Route: 065
     Dates: start: 20240904, end: 20240904

REACTIONS (4)
  - Oral pain [Recovering/Resolving]
  - Mouth swelling [Recovering/Resolving]
  - Petechiae [Unknown]
  - Dizziness [Not Recovered/Not Resolved]

NARRATIVE: CASE EVENT DATE: 20240904
